FAERS Safety Report 18653115 (Version 1)
Quarter: 2020Q4

REPORT INFORMATION
  Report Type: Spontaneous
  Country: US (occurrence: US)
  Receive Date: 20201223
  Receipt Date: 20201223
  Transmission Date: 20210114
  Serious: Yes (Hospitalization, Other)
  Sender: FDA-Public Use
  Company Number: US-SA-2020SA363477

PATIENT

DRUGS (3)
  1. CORTIZONE 10 [Suspect]
     Active Substance: HYDROCORTISONE
     Indication: ARTHRITIS
     Dosage: UNK
     Route: 065
  2. OPSUMIT [Concomitant]
     Active Substance: MACITENTAN
     Dosage: UNK
     Route: 065
  3. TYVASO [Suspect]
     Active Substance: TREPROSTINIL
     Indication: PULMONARY ARTERIAL HYPERTENSION
     Dosage: 18-54 UG, QID
     Route: 055
     Dates: start: 20160915

REACTIONS (2)
  - Joint swelling [Unknown]
  - Myocardial infarction [Unknown]
